FAERS Safety Report 7985064 (Version 3)
Quarter: 2014Q1

REPORT INFORMATION
  Report Type: Spontaneous
  Country: US (occurrence: US)
  Receive Date: 20110610
  Receipt Date: 20140106
  Transmission Date: 20141002
  Serious: Yes (Other)
  Sender: FDA-Public Use
  Company Number: US-JNJFOC-20110602551

PATIENT
  Age: 44 Year
  Sex: Male
  Weight: 102.06 kg

DRUGS (13)
  1. DURAGESIC [Suspect]
     Indication: BONE DISORDER
     Route: 062
     Dates: start: 201103, end: 20110514
  2. CELEBREX [Concomitant]
     Indication: ARTHRITIS
     Route: 048
     Dates: start: 201103
  3. LISINOPRIL HCTZ [Concomitant]
     Indication: HYPERTENSION
     Route: 048
     Dates: start: 2010
  4. LISINOPRIL [Concomitant]
     Indication: HYPERTENSION
     Route: 048
     Dates: start: 2010
  5. PRAVASTATIN [Concomitant]
     Indication: BLOOD CHOLESTEROL INCREASED
     Route: 048
     Dates: start: 2011
  6. PREVACID [Concomitant]
     Indication: DYSPEPSIA
     Route: 048
  7. CELEXA [Concomitant]
     Indication: DEPRESSION
     Route: 048
  8. CELEXA [Concomitant]
     Indication: ANXIETY
     Route: 048
  9. BABY ASPIRIN [Concomitant]
     Route: 048
  10. ATENOLOL [Concomitant]
     Indication: CARDIAC DISORDER
     Route: 048
  11. CLONOPIN [Concomitant]
     Indication: ANXIETY
     Dosage: 1MG IN AM 2MG IN PM FOR 6 MONTHS
     Route: 065
  12. ALBUTEROL [Concomitant]
     Indication: ASTHMA
     Route: 055
  13. HYALURONIC ACID [Concomitant]
     Indication: ARTHROPATHY
     Route: 065

REACTIONS (12)
  - Disability [Not Recovered/Not Resolved]
  - Headache [Recovered/Resolved]
  - Skin burning sensation [Recovered/Resolved]
  - Application site vesicles [Recovered/Resolved]
  - Burning sensation [Recovered/Resolved]
  - Burning sensation [Recovered/Resolved]
  - Nausea [Recovered/Resolved]
  - Influenza like illness [Recovered/Resolved]
  - Diarrhoea [Recovered/Resolved]
  - Muscle spasms [Recovered/Resolved]
  - Treatment noncompliance [Not Recovered/Not Resolved]
  - Product quality issue [Unknown]
